FAERS Safety Report 7485449-5 (Version None)
Quarter: 2011Q2

REPORT INFORMATION
  Report Type: 
  Country: None (occurrence: None)
  Receive Date: 20110516
  Receipt Date: 20110516
  Transmission Date: 20111010
  Serious: No
  Sender: FDA-Public Use
  Company Number: None

PATIENT
  Sex: Female
  Weight: 42.6381 kg

DRUGS (1)
  1. LAMOTRIGINE [Suspect]

REACTIONS (1)
  - CONVULSION [None]
